FAERS Safety Report 17205411 (Version 1)
Quarter: 2019Q4

REPORT INFORMATION
  Report Type: Report from Study
  Country: US (occurrence: US)
  Receive Date: 20191227
  Receipt Date: 20191227
  Transmission Date: 20200122
  Serious: Yes (Hospitalization)
  Sender: FDA-Public Use
  Company Number: US-BIOGEN-2019BI00819516

PATIENT
  Sex: Female

DRUGS (1)
  1. TECFIDERA [Suspect]
     Active Substance: DIMETHYL FUMARATE
     Indication: MULTIPLE SCLEROSIS
     Route: 065
     Dates: start: 20150707

REACTIONS (7)
  - Pyrexia [Unknown]
  - Viral infection [Not Recovered/Not Resolved]
  - Inflammation [Unknown]
  - Mobility decreased [Unknown]
  - Cough [Unknown]
  - Flushing [Not Recovered/Not Resolved]
  - Head discomfort [Unknown]
